FAERS Safety Report 6969373-X (Version None)
Quarter: 2010Q3

REPORT INFORMATION
  Report Type: 
  Country: None (occurrence: None)
  Receive Date: 20100907
  Receipt Date: 20100726
  Transmission Date: 20110219
  Serious: No
  Sender: FDA-Public Use
  Company Number: US-ABBOTT-10P-163-0660832-00

PATIENT
  Sex: Male
  Weight: 86.26 kg

DRUGS (3)
  1. TRICOR [Suspect]
     Indication: BLOOD TRIGLYCERIDES INCREASED
     Dates: start: 20090701, end: 20091001
  2. BYSTOLIC [Concomitant]
     Indication: HYPERTENSION
  3. PROTONIX [Concomitant]
     Indication: GASTROOESOPHAGEAL REFLUX DISEASE

REACTIONS (2)
  - BLOOD TRIGLYCERIDES INCREASED [None]
  - MUSCLE SPASMS [None]
